FAERS Safety Report 7854615-9 (Version None)
Quarter: 2011Q3

REPORT INFORMATION
  Report Type: 
  Country: None (occurrence: None)
  Receive Date: 20110916
  Receipt Date: 20110422
  Transmission Date: 20111222
  Serious: Yes (Other)
  Sender: FDA-Public Use
  Company Number: 2011SP018403

PATIENT
  Age: 21 Year
  Sex: Female
  Weight: 104.3273 kg

DRUGS (1)
  1. IMPLANON [Suspect]
     Indication: CONTRACEPTION
     Dates: start: 20100223

REACTIONS (4)
  - THROMBOSIS [None]
  - ALOPECIA [None]
  - FATIGUE [None]
  - MENORRHAGIA [None]
